FAERS Safety Report 9749317 (Version 1)
Quarter: 2013Q4

REPORT INFORMATION
  Report Type: Spontaneous
  Country: US (occurrence: US)
  Receive Date: 20131212
  Receipt Date: 20131212
  Transmission Date: 20140711
  Serious: Yes (Other)
  Sender: FDA-Public Use
  Company Number: US-INCYTE CORPORATION-2013IN002587

PATIENT
  Age: 89 Year
  Sex: Male

DRUGS (8)
  1. JAKAFI [Suspect]
     Indication: MYELOPROLIFERATIVE DISORDER
     Dosage: 10 MG, BID
     Route: 048
     Dates: start: 20130920, end: 20131016
  2. JAKAFI [Suspect]
     Dosage: 5 MG, BID
     Route: 048
     Dates: start: 20131023
  3. DOCUSATE [Concomitant]
  4. CALCIUM CHLORIDE [Concomitant]
  5. ASPIRIN [Concomitant]
     Dosage: 81 MG, UNK
     Route: 065
  6. TERAZOSIN [Concomitant]
  7. ATENOLOL [Concomitant]
  8. LASIX [Concomitant]

REACTIONS (2)
  - Anaemia [Unknown]
  - Thrombocytopenia [Unknown]
